FAERS Safety Report 7909607-8 (Version None)
Quarter: 2011Q4

REPORT INFORMATION
  Report Type: 
  Country: None (occurrence: None)
  Receive Date: 20111111
  Receipt Date: 20111109
  Transmission Date: 20120403
  Serious: Yes (Hospitalization, Disabling, Other)
  Sender: FDA-Public Use
  Company Number: US-GLAXOSMITHKLINE-A0865927A

PATIENT
  Age: 67 Year
  Sex: Female

DRUGS (16)
  1. BUMETANIDE [Concomitant]
     Dosage: 2MG TWICE PER DAY
  2. LASIX [Concomitant]
     Dosage: 40MG TWICE PER DAY
  3. IMITREX [Concomitant]
  4. VITAMIN D [Concomitant]
     Dosage: 200MG PER DAY
  5. CARVEDILOL [Concomitant]
     Dosage: 25MG TWICE PER DAY
  6. METOLAZONE [Concomitant]
  7. LIPITOR [Concomitant]
     Dosage: 80MG PER DAY
  8. FOLIC ACID [Concomitant]
  9. PREVACID [Concomitant]
     Dosage: 30MG PER DAY
  10. HYDRALAZINE HCL [Concomitant]
     Dosage: 25MG TWICE PER DAY
  11. KLONOPIN [Concomitant]
  12. PROMACTA [Suspect]
     Indication: AUTOIMMUNE THROMBOCYTOPENIA
     Dosage: 50MG PER DAY
     Route: 048
     Dates: start: 20091101, end: 20110907
  13. VITAMIN D [Concomitant]
     Dosage: 5000UNIT MONTHLY
  14. LANTUS [Concomitant]
     Dosage: 18MG IN THE MORNING
  15. BENICAR [Concomitant]
     Dosage: 40MG PER DAY
  16. NOVOLOG [Concomitant]

REACTIONS (5)
  - DIZZINESS [None]
  - LEUKOCYTOSIS [None]
  - DEEP VEIN THROMBOSIS [None]
  - ASTHENIA [None]
  - HAEMATOMA [None]
